FAERS Safety Report 4281072-4 (Version None)
Quarter: 2004Q1

REPORT INFORMATION
  Report Type: 
  Country: None (occurrence: None)
  Receive Date: 20040123
  Receipt Date: 20021220
  Transmission Date: 20041129
  Serious: Yes (Hospitalization)
  Sender: FDA-Public Use
  Company Number: HQ5881223DEC2002

PATIENT
  Sex: Male

DRUGS (1)
  1. CORDARONE [Suspect]

REACTIONS (2)
  - CARDIAC FAILURE CONGESTIVE [None]
  - MACULAR DEGENERATION [None]
